FAERS Safety Report 11153306 (Version 1)
Quarter: 2015Q2

REPORT INFORMATION
  Report Type: Spontaneous
  Country: US (occurrence: US)
  Receive Date: 20150601
  Receipt Date: 20150601
  Transmission Date: 20150821
  Serious: Yes (Hospitalization)
  Sender: FDA-Public Use
  Company Number: PHHY2015US062870

PATIENT
  Age: 47 Year
  Sex: Female

DRUGS (1)
  1. IBUPROFENO [Suspect]
     Active Substance: IBUPROFEN
     Indication: HEADACHE
     Dosage: 800 MG, 14-56 TABLETS WEEKLY
     Route: 065

REACTIONS (8)
  - Dysarthria [Recovering/Resolving]
  - Asterixis [Recovering/Resolving]
  - Metabolic acidosis [Recovering/Resolving]
  - Abnormal behaviour [Recovering/Resolving]
  - Hypokalaemia [Recovering/Resolving]
  - Hyperammonaemia [Recovering/Resolving]
  - Lethargy [Recovering/Resolving]
  - Renal tubular acidosis [Recovering/Resolving]
